FAERS Safety Report 7940865-X (Version None)
Quarter: 2011Q4

REPORT INFORMATION
  Report Type: 
  Country: None (occurrence: None)
  Receive Date: 20111122
  Receipt Date: 20111110
  Transmission Date: 20120403
  Serious: Yes (Life-Threatening, Hospitalization, Other)
  Sender: FDA-Public Use
  Company Number: 2011MA016236

PATIENT
  Age: 32 Year
  Sex: Female
  Weight: 48 kg

DRUGS (3)
  1. ACETAMINOPHEN [Suspect]
     Indication: PRODUCT USED FOR UNKNOWN INDICATION
     Dosage: 45 MG/ML; X1; PO
     Route: 048
  2. CARBAMAZEPINE [Suspect]
     Indication: INTENTIONAL OVERDOSE
     Dosage: 32 GM;X1; PO
     Route: 048
  3. ETHANOL [Suspect]
     Indication: PRODUCT USED FOR UNKNOWN INDICATION
     Dosage: 190 MG/ML; X1; PO
     Route: 048

REACTIONS (18)
  - DEPRESSED LEVEL OF CONSCIOUSNESS [None]
  - UNRESPONSIVE TO STIMULI [None]
  - HYPOREFLEXIA [None]
  - ALANINE AMINOTRANSFERASE INCREASED [None]
  - NEUROLOGICAL DECOMPENSATION [None]
  - TOXICITY TO VARIOUS AGENTS [None]
  - GRAND MAL CONVULSION [None]
  - INTENTIONAL OVERDOSE [None]
  - GASTROINTESTINAL SOUNDS ABNORMAL [None]
  - CARDIOVASCULAR DISORDER [None]
  - HYPOXIA [None]
  - SUICIDE ATTEMPT [None]
  - HYPOTONIA [None]
  - OCULOCEPHALOGYRIC REFLEX ABSENT [None]
  - CORNEAL REFLEX DECREASED [None]
  - HYPOTENSION [None]
  - HAEMODIALYSIS [None]
  - BLOOD CALCIUM DECREASED [None]
